FAERS Safety Report 6131530-2 (Version None)
Quarter: 2009Q1

REPORT INFORMATION
  Report Type: 
  Country: None (occurrence: None)
  Receive Date: 20090325
  Receipt Date: 20081212
  Transmission Date: 20090719
  Serious: Yes (Life-Threatening, Hospitalization)
  Sender: FDA-Public Use
  Company Number: US-BRISTOL-MYERS SQUIBB COMPANY-14343503

PATIENT
  Age: 70 Year
  Sex: Male

DRUGS (4)
  1. ERBITUX [Suspect]
     Indication: COLON CANCER STAGE IV
     Dosage: THERAPY DURATION - REACTED 15 MIN AFTER RX STARTED, WAS TO RUN OVER 2 HOURS
     Route: 042
     Dates: start: 20060411, end: 20060411
  2. ALOXI [Concomitant]
     Route: 042
  3. BENADRYL [Concomitant]
     Route: 042
  4. DECADRON [Concomitant]
     Route: 042

REACTIONS (1)
  - ANAPHYLACTIC REACTION [None]
